FAERS Safety Report 7220032-8 (Version None)
Quarter: 2011Q1

REPORT INFORMATION
  Report Type: 
  Country: None (occurrence: None)
  Receive Date: 20110111
  Receipt Date: 20101221
  Transmission Date: 20110831
  Serious: Yes (Hospitalization, Congenital Anomaly)
  Sender: FDA-Public Use
  Company Number: A0679410A

PATIENT
  Sex: Female

DRUGS (2)
  1. PAXIL [Suspect]
     Indication: DEPRESSION
     Dates: start: 19960101, end: 19980101
  2. AMOXIL [Concomitant]
     Dates: start: 19971104

REACTIONS (5)
  - DOUBLE OUTLET RIGHT VENTRICLE [None]
  - VENTRICULAR SEPTAL DEFECT [None]
  - CARDIAC FAILURE CONGESTIVE [None]
  - DRUG EXPOSURE DURING PREGNANCY [None]
  - PULMONARY ARTERY STENOSIS CONGENITAL [None]
